FAERS Safety Report 19113855 (Version 2)
Quarter: 2021Q2

REPORT INFORMATION
  Report Type: Report from Study
  Country: US (occurrence: US)
  Receive Date: 20210408
  Receipt Date: 20210415
  Transmission Date: 20210717
  Serious: No
  Sender: FDA-Public Use
  Company Number: NVSC2021US078787

PATIENT
  Sex: Male

DRUGS (1)
  1. COSENTYX [Suspect]
     Active Substance: SECUKINUMAB
     Indication: PSORIASIS
     Dosage: 75 MG, UNKNOWN
     Route: 058

REACTIONS (3)
  - Incorrect dose administered [Unknown]
  - Psoriasis [Unknown]
  - Inappropriate schedule of product administration [Unknown]
